FAERS Safety Report 6949832-6 (Version None)
Quarter: 2010Q3

REPORT INFORMATION
  Report Type: 
  Country: None (occurrence: None)
  Receive Date: 20100828
  Receipt Date: 20100113
  Transmission Date: 20110219
  Serious: No
  Sender: FDA-Public Use
  Company Number: US-ABBOTT-10P-163-0619995-00

PATIENT
  Sex: Female
  Weight: 77.18 kg

DRUGS (2)
  1. NIASPAN [Suspect]
     Indication: BLOOD CHOLESTEROL INCREASED
     Route: 048
     Dates: start: 20091001, end: 20091201
  2. ASPIRIN [Concomitant]
     Indication: PROPHYLAXIS
     Dosage: DAILY 30 MINUTES PRIOR NIASPAN
     Route: 048

REACTIONS (1)
  - FLUSHING [None]
